FAERS Safety Report 4759249-0 (Version None)
Quarter: 2005Q3

REPORT INFORMATION
  Report Type: 
  Country: None (occurrence: None)
  Receive Date: 20050831
  Receipt Date: 20050811
  Transmission Date: 20060218
  Serious: Yes (Other)
  Sender: FDA-Public Use
  Company Number: US_020785823

PATIENT
  Age: 55 Year
  Sex: Female

DRUGS (2)
  1. RALOXIFENE HCL [Suspect]
     Indication: OSTEOPENIA
     Dosage: 60 MG DAY
  2. CALCIUM GLUCONATE [Concomitant]

REACTIONS (3)
  - BREAST CYST [None]
  - BREAST PAIN [None]
  - MAMMOGRAM ABNORMAL [None]
